FAERS Safety Report 7949699-3 (Version None)
Quarter: 2011Q4

REPORT INFORMATION
  Report Type: 
  Country: None (occurrence: None)
  Receive Date: 20111130
  Receipt Date: 20111118
  Transmission Date: 20120403
  Serious: Yes (Hospitalization)
  Sender: FDA-Public Use
  Company Number: US-BAYER-201037305NA

PATIENT
  Age: 45 Year
  Sex: Female
  Weight: 63 kg

DRUGS (10)
  1. DROSPIRENONE AND ETHINYL ESTRADIOL [Suspect]
     Indication: PREMENSTRUAL SYNDROME
     Route: 048
  2. PREDNISONE TAB [Concomitant]
     Dosage: 5 MG, UNK
     Route: 048
  3. ALLEGRA [Concomitant]
     Dosage: 180 MG, UNK
     Route: 048
  4. YAZ [Suspect]
     Indication: PREMENSTRUAL SYNDROME
     Route: 048
  5. LEVOTHYROXINE SODIUM [Concomitant]
     Dosage: 0.05 MG, UNK
     Route: 048
  6. EFFEXOR XR [Concomitant]
     Dosage: 150 MG, UNK
     Route: 048
  7. SIMVASTATIN [Concomitant]
     Dosage: 40 MG, UNK
     Route: 048
  8. YASMIN [Suspect]
     Indication: PREMENSTRUAL SYNDROME
     Route: 048
  9. MORPHINE SULFATE [Concomitant]
     Dosage: 15 MG, UNK
     Route: 048
  10. VENLAFAXINE [Concomitant]
     Dosage: 75 MG, UNK
     Route: 048

REACTIONS (7)
  - DYSPNOEA [None]
  - ANXIETY [None]
  - DEEP VEIN THROMBOSIS [None]
  - DEPRESSION [None]
  - STRESS [None]
  - PAIN IN EXTREMITY [None]
  - PULMONARY EMBOLISM [None]
